FAERS Safety Report 11797871 (Version 3)
Quarter: 2016Q1

REPORT INFORMATION
  Report Type: Report from Study
  Country: IT (occurrence: IT)
  Receive Date: 20151203
  Receipt Date: 20160223
  Transmission Date: 20160525
  Serious: Yes (Death, Hospitalization)
  Sender: FDA-Public Use
  Company Number: IT-CELGENE-ITA-2015116194

PATIENT
  Age: 71 Year
  Sex: Female

DRUGS (1)
  1. REVLIMID [Suspect]
     Active Substance: LENALIDOMIDE
     Indication: PLASMA CELL MYELOMA
     Dosage: 10 MILLIGRAM
     Route: 048
     Dates: start: 20151021, end: 20151021

REACTIONS (1)
  - Colon cancer metastatic [Not Recovered/Not Resolved]

NARRATIVE: CASE EVENT DATE: 20151116
